FAERS Safety Report 8373813 (Version 2)
Quarter: 2013Q1

REPORT INFORMATION
  Report Type: Report from Study
  Country: US (occurrence: US)
  Receive Date: 20120128
  Receipt Date: 20130129
  Transmission Date: 20140127
  Serious: Yes (Other)
  Sender: FDA-Public Use
  Company Number: US-ABBOTT-11P-163-0851151-00

PATIENT
  Sex: Female
  Weight: 65.83 kg

DRUGS (7)
  1. HUMIRA 40 MG/0.8 ML PEN [Suspect]
     Indication: RHEUMATOID ARTHRITIS
     Dates: start: 20040520
  2. METHOTREXATE [Concomitant]
     Indication: RHEUMATOID ARTHRITIS
     Dosage: 2.5MG/5 PILLS EVERY WEDNESDAY
  3. ACTONEL [Concomitant]
     Indication: RHEUMATOID ARTHRITIS
     Dosage: 35 MG EVERY MONDAY
  4. CALCIUM [Concomitant]
     Indication: VITAMIN SUPPLEMENTATION
  5. MULTIVITAMIN [Concomitant]
     Indication: VITAMIN SUPPLEMENTATION
  6. FOLIC ACID [Concomitant]
     Indication: VITAMIN SUPPLEMENTATION
  7. ZETIA [Concomitant]
     Indication: PRODUCT USED FOR UNKNOWN INDICATION
     Dosage: 10 MG DAILY

REACTIONS (5)
  - Invasive ductal breast carcinoma [Unknown]
  - Erythema [Unknown]
  - Skin exfoliation [Unknown]
  - Dry skin [Unknown]
  - Breast discomfort [Unknown]
